FAERS Safety Report 4429479-6 (Version None)
Quarter: 2004Q3

REPORT INFORMATION
  Report Type: 
  Country: None (occurrence: None)
  Receive Date: 20040816
  Receipt Date: 20040810
  Transmission Date: 20050211
  Serious: Yes (Death, Hospitalization)
  Sender: FDA-Public Use
  Company Number: 200410749BVD

PATIENT
  Age: 66 Year
  Sex: Male

DRUGS (1)
  1. AVELOX [Suspect]
     Indication: BRONCHITIS ACUTE
     Dosage: 400 MG, ORAL
     Route: 048
     Dates: start: 20040423, end: 20040501

REACTIONS (12)
  - ABDOMINAL PAIN [None]
  - APLASTIC ANAEMIA [None]
  - BODY TEMPERATURE INCREASED [None]
  - BONE MARROW TOXICITY [None]
  - COUGH [None]
  - GENERAL PHYSICAL HEALTH DETERIORATION [None]
  - HELICOBACTER GASTRITIS [None]
  - HYPOCHROMIC ANAEMIA [None]
  - MYELODYSPLASTIC SYNDROME [None]
  - OESOPHAGITIS ULCERATIVE [None]
  - REFLUX OESOPHAGITIS [None]
  - SEPSIS [None]
